FAERS Safety Report 11322191 (Version 1)
Quarter: 2015Q3

REPORT INFORMATION
  Report Type: Report from Study
  Country: BR (occurrence: BR)
  Receive Date: 20150729
  Receipt Date: 20150729
  Transmission Date: 20151125
  Serious: Yes (Other)
  Sender: FDA-Public Use
  Company Number: PHHY2015BR091253

PATIENT
  Sex: Male

DRUGS (1)
  1. SANDOSTATIN LAR DEPOT [Suspect]
     Active Substance: OCTREOTIDE ACETATE
     Indication: PRODUCT USED FOR UNKNOWN INDICATION
     Dosage: UNK
     Route: 065

REACTIONS (6)
  - Small intestine carcinoma [Unknown]
  - Therapeutic response decreased [Unknown]
  - Dyspepsia [Unknown]
  - Hepatic pain [Unknown]
  - Metastases to liver [Unknown]
  - Hepatic function abnormal [Unknown]
